FAERS Safety Report 22190621 (Version 1)
Quarter: 2023Q2

REPORT INFORMATION
  Report Type: Spontaneous
  Country: MX (occurrence: MX)
  Receive Date: 20230410
  Receipt Date: 20230410
  Transmission Date: 20230722
  Serious: Yes (Other)
  Sender: FDA-Public Use
  Company Number: MX-AMGEN-MEXSP2023060198

PATIENT
  Age: 68 Year
  Sex: Male

DRUGS (4)
  1. DARBEPOETIN ALFA [Suspect]
     Active Substance: DARBEPOETIN ALFA
     Indication: End stage renal disease
     Dosage: 30 MICROGRAM, QWK
     Route: 065
  2. CINACALCET HYDROCHLORIDE [Suspect]
     Active Substance: CINACALCET HYDROCHLORIDE
     Indication: Hyperparathyroidism secondary
     Dosage: 30 MILLIGRAM, QD (EVERY 24 HOURS)
     Route: 065
  3. IRON [Concomitant]
     Active Substance: IRON
     Dosage: UNK, Q6MO
     Route: 042
  4. PARICALCITOL [Concomitant]
     Active Substance: PARICALCITOL
     Dosage: 2 MICROGRAM, EVERY THIRD DAY

REACTIONS (2)
  - Fungal peritonitis [Recovering/Resolving]
  - Mucormycosis [Recovering/Resolving]
